FAERS Safety Report 24579660 (Version 2)
Quarter: 2024Q4

REPORT INFORMATION
  Report Type: Report from Study
  Country: IT (occurrence: IT)
  Receive Date: 20241105
  Receipt Date: 20241115
  Transmission Date: 20250115
  Serious: Yes (Other)
  Sender: AUROBINDO
  Company Number: IT-CHEPLA-2024013312

PATIENT
  Age: 71 Year
  Sex: Male

DRUGS (7)
  1. OXALIPLATIN [Suspect]
     Active Substance: OXALIPLATIN
     Indication: Colorectal cancer
     Dosage: UNK
     Route: 065
     Dates: start: 201910
  2. OXALIPLATIN [Suspect]
     Active Substance: OXALIPLATIN
     Indication: Malignant neoplasm progression
  3. EXEMESTANE [Suspect]
     Active Substance: EXEMESTANE
     Indication: Product used for unknown indication
     Dosage: UNK
     Route: 065
     Dates: start: 202109
  4. CAPECITABINE [Suspect]
     Active Substance: CAPECITABINE
     Indication: Colorectal cancer
     Dosage: UNK
     Route: 065
     Dates: start: 201910
  5. CAPECITABINE [Suspect]
     Active Substance: CAPECITABINE
     Indication: Malignant neoplasm progression
  6. FLUOROURACIL [Suspect]
     Active Substance: FLUOROURACIL
     Indication: Colorectal cancer
     Dosage: UNK
     Route: 065
     Dates: start: 201901
  7. FLUOROURACIL [Suspect]
     Active Substance: FLUOROURACIL
     Indication: Malignant neoplasm progression

REACTIONS (5)
  - Acute promyelocytic leukaemia [Recovered/Resolved]
  - Breast cancer [Unknown]
  - Atrial fibrillation [Unknown]
  - Cardiac failure [Unknown]
  - Renal failure [Unknown]

NARRATIVE: CASE EVENT DATE: 20210901
